FAERS Safety Report 16785744 (Version 4)
Quarter: 2020Q3

REPORT INFORMATION
  Report Type: Spontaneous
  Country: US (occurrence: US)
  Receive Date: 20190909
  Receipt Date: 20200810
  Transmission Date: 20201102
  Serious: No
  Sender: FDA-Public Use
  Company Number: US-PFIZER INC-2019389030

PATIENT
  Age: 58 Year
  Sex: Female

DRUGS (2)
  1. NICOTROL [Suspect]
     Active Substance: NICOTINE
     Indication: SMOKING CESSATION THERAPY
     Dosage: AS NEEDED (1 PUFF EVERY HOUR AS NEEDED)
  2. NICOTROL [Suspect]
     Active Substance: NICOTINE
     Dosage: 1 DF, AS NEEDED (ONE PUFF EVERY HOUR AS NEEDED)
     Dates: start: 20200729

REACTIONS (1)
  - Chronic obstructive pulmonary disease [Unknown]
